FAERS Safety Report 4824752-1 (Version None)
Quarter: 2005Q4

REPORT INFORMATION
  Report Type: 
  Country: None (occurrence: None)
  Receive Date: 20051108
  Receipt Date: 20051028
  Transmission Date: 20060501
  Serious: Yes (Other)
  Sender: FDA-Public Use
  Company Number: 12760

PATIENT
  Age: 48 Year
  Sex: Female

DRUGS (9)
  1. METHOTREXATE [Suspect]
     Indication: ACUTE LYMPHOCYTIC LEUKAEMIA
     Dosage: 15 MG PER_CYCLE IT
     Route: 037
  2. CYTARABINE [Suspect]
     Indication: ACUTE LYMPHOCYTIC LEUKAEMIA
  3. CYCLOPHOSPHAMIDE [Concomitant]
  4. DEXAMETHASONE [Concomitant]
  5. ELSPAR [Concomitant]
  6. VINCRISTINE [Concomitant]
  7. DAUNORUBICIN [Concomitant]
  8. PREDNISOLONE [Concomitant]
  9. MERCAPTOPURINE [Concomitant]

REACTIONS (12)
  - ASTHENIA [None]
  - BLOOD ALBUMIN DECREASED [None]
  - DIABETIC NEUROPATHY [None]
  - FAECAL INCONTINENCE [None]
  - INFLAMMATION [None]
  - LEUKOCYTOSIS [None]
  - MYELOPATHY [None]
  - OEDEMA [None]
  - PARAPARESIS [None]
  - PROGRESSIVE MULTIFOCAL LEUKOENCEPHALOPATHY [None]
  - STEM CELL TRANSPLANT [None]
  - URINARY INCONTINENCE [None]
